FAERS Safety Report 7400331-7 (Version None)
Quarter: 2011Q2

REPORT INFORMATION
  Report Type: 
  Country: None (occurrence: None)
  Receive Date: 20110407
  Receipt Date: 20110401
  Transmission Date: 20111010
  Serious: Yes (Hospitalization, Other)
  Sender: FDA-Public Use
  Company Number: US-BRISTOL-MYERS SQUIBB COMPANY-15571532

PATIENT
  Age: 49 Year
  Sex: Female

DRUGS (4)
  1. METFORMIN [Concomitant]
     Dates: start: 20110223
  2. CETUXIMAB [Suspect]
     Indication: NON-SMALL CELL LUNG CANCER
     Dosage: INTERRUPTED ON 24FEB2011
     Route: 042
     Dates: start: 20110120
  3. ALTACE [Concomitant]
     Dates: start: 20110223
  4. ATENOLOL [Concomitant]
     Dates: start: 20110124

REACTIONS (3)
  - NEUTROPENIA [None]
  - PERICARDIAL EFFUSION [None]
  - ANAEMIA [None]
